FAERS Safety Report 18281596 (Version 1)
Quarter: 2020Q3

REPORT INFORMATION
  Report Type: Report from Study
  Country: US (occurrence: US)
  Receive Date: 20200918
  Receipt Date: 20200918
  Transmission Date: 20201103
  Serious: No
  Sender: FDA-Public Use
  Company Number: NVSC2020US254609

PATIENT
  Sex: Female

DRUGS (1)
  1. KISQALI [Suspect]
     Active Substance: RIBOCICLIB
     Indication: PRODUCT USED FOR UNKNOWN INDICATION
     Dosage: 200 MG, TAKE 3 TABLETS (600 MG) BY MOUTH EVERY DAY FOR 21 DAYS AND 7 DAYS OFF
     Route: 048

REACTIONS (1)
  - Pruritus [Unknown]
